FAERS Safety Report 8923704 (Version 1)
Quarter: 2012Q4

REPORT INFORMATION
  Report Type: Spontaneous
  Country: FR (occurrence: None)
  Receive Date: 20121115
  Receipt Date: 20121115
  Transmission Date: 20130627
  Serious: Yes (Hospitalization)
  Sender: FDA-Public Use
  Company Number: FK201203305

PATIENT
  Age: 49 Year
  Sex: Female

DRUGS (4)
  1. TERBUTALINE [Suspect]
     Dosage: 5 mg/2 mL
  2. SALBUTAMOL (SALBUTAMOL) [Concomitant]
  3. IPRATROPIUM (IPRATROPIUM) [Concomitant]
  4. METHYLPREDNISOLONE (METHYLPREDNISOLONE) [Concomitant]

REACTIONS (3)
  - Lactic acidosis [None]
  - Respiratory distress [None]
  - Wheezing [None]
